FAERS Safety Report 26212581 (Version 1)
Quarter: 2025Q4

REPORT INFORMATION
  Report Type: Spontaneous
  Country: US (occurrence: US)
  Receive Date: 20251230
  Receipt Date: 20251230
  Transmission Date: 20260117
  Serious: No
  Sender: ROCHE
  Company Number: US-ROCHE-10000468902

PATIENT
  Age: 13 Year
  Sex: Female

DRUGS (2)
  1. XOLAIR [Suspect]
     Active Substance: OMALIZUMAB
     Indication: Product used for unknown indication
     Dosage: USES 1 300MG INJECTION AND 1 75MG INJECTION FOR A TOTAL OF 375MG
     Route: 058
  2. XOLAIR [Suspect]
     Active Substance: OMALIZUMAB
     Dosage: TAKES 1 75MG INJECTION AND 1 300MG INJECTION FOR A TOTAL DOSE OF 375MG
     Route: 058

REACTIONS (3)
  - Underdose [Unknown]
  - Incorrect dose administered [Unknown]
  - No adverse event [Unknown]

NARRATIVE: CASE EVENT DATE: 20251223
